FAERS Safety Report 4850828-9 (Version None)
Quarter: 2005Q4

REPORT INFORMATION
  Report Type: 
  Country: None (occurrence: None)
  Receive Date: 20051208
  Receipt Date: 20051208
  Transmission Date: 20060501
  Serious: Yes (Hospitalization)
  Sender: FDA-Public Use
  Company Number: None

PATIENT
  Age: 74 Year

DRUGS (1)
  1. CAMPTOSAR [Suspect]
     Indication: SMALL CELL CARCINOMA
     Dosage: 90 MG IV OVER 1 HR
     Route: 042

REACTIONS (3)
  - ANAEMIA [None]
  - HYPOTENSION [None]
  - POST PROCEDURAL DIARRHOEA [None]
